FAERS Safety Report 14507889 (Version 1)
Quarter: 2018Q1

REPORT INFORMATION
  Report Type: Report from Study
  Country: CH (occurrence: CH)
  Receive Date: 20180208
  Receipt Date: 20180208
  Transmission Date: 20180509
  Serious: Yes (Other)
  Sender: FDA-Public Use
  Company Number: CH-TEVA-2018-CH-855597

PATIENT
  Sex: Female

DRUGS (4)
  1. GEMCITABINE [Suspect]
     Active Substance: GEMCITABINE\GEMCITABINE HYDROCHLORIDE
     Indication: CERVIX CARCINOMA
     Dosage: OVER 30 MINUTES
     Route: 041
  2. CISPLATIN. [Suspect]
     Active Substance: CISPLATIN
     Dosage: 50 MG/M2 ON DAY 1 OF 21-DAY CYCLES (2 CONSECUTIVE CYCLES)
     Route: 065
  3. GEMCITABINE [Suspect]
     Active Substance: GEMCITABINE\GEMCITABINE HYDROCHLORIDE
     Dosage: 1000 MG/M2 ON DAYS 1 AND 8 OF 21-DAY CYCLES (TWO CONSECUTIVE CYCLES)
     Route: 065
  4. CISPLATIN. [Suspect]
     Active Substance: CISPLATIN
     Indication: CERVIX CARCINOMA
     Dosage: OVER 60 MINUTES
     Route: 041

REACTIONS (1)
  - Fat necrosis [Unknown]
